FAERS Safety Report 13202834 (Version 3)
Quarter: 2017Q1

REPORT INFORMATION
  Report Type: Report from Study
  Country: US (occurrence: US)
  Receive Date: 20170209
  Receipt Date: 20170330
  Transmission Date: 20170428
  Serious: Yes (Hospitalization)
  Sender: FDA-Public Use
  Company Number: US-BAYER-2017-020342

PATIENT
  Age: 59 Year
  Sex: Female
  Weight: 102.4 kg

DRUGS (25)
  1. STIVARGA [Suspect]
     Active Substance: REGORAFENIB
     Indication: COLORECTAL CANCER
     Dosage: 160 MG, QD
     Route: 048
     Dates: start: 20170110, end: 20170130
  2. STIVARGA [Suspect]
     Active Substance: REGORAFENIB
     Indication: COLORECTAL CANCER
     Dosage: 160 MG, QD
     Route: 048
     Dates: end: 20170304
  3. LASIX [Concomitant]
     Active Substance: FUROSEMIDE
  4. MUPIROCIN. [Concomitant]
     Active Substance: MUPIROCIN
  5. CYCLOBENZAPRINE [Concomitant]
     Active Substance: CYCLOBENZAPRINE
  6. STIVARGA [Suspect]
     Active Substance: REGORAFENIB
     Indication: COLORECTAL CANCER
     Dosage: 80 MG DAILY
     Route: 048
     Dates: start: 20170221
  7. STIVARGA [Suspect]
     Active Substance: REGORAFENIB
     Indication: COLORECTAL CANCER
     Dosage: 80 MG, DAILY
     Route: 048
     Dates: start: 20170307
  8. DIPHENOXYLATE W/ATROPINE SULFATE [Concomitant]
     Active Substance: ATROPINE SULFATE\DIPHENOXYLATE
  9. LISINOPRIL. [Concomitant]
     Active Substance: LISINOPRIL
  10. ALEVE [Concomitant]
     Active Substance: NAPROXEN SODIUM
  11. CALCIUM [Concomitant]
     Active Substance: CALCIUM
  12. MELATONIN [Concomitant]
     Active Substance: MELATONIN
  13. INSULIN GLARGINE [Concomitant]
     Active Substance: INSULIN GLARGINE
  14. MAGNESIUM [Concomitant]
     Active Substance: MAGNESIUM
  15. CLOTRIMAZOLE W/BETAMETHASONE DIPROPIONAT [Concomitant]
  16. HUMALOG [Concomitant]
     Active Substance: INSULIN LISPRO
  17. AMLODIPINE [Concomitant]
     Active Substance: AMLODIPINE BESYLATE
  18. LOMOTIL [DIPHENOXYLATE HYDROCHLORIDE] [Concomitant]
  19. ACETAZOLAMIDE. [Concomitant]
     Active Substance: ACETAZOLAMIDE
  20. SIMVASTATIN. [Concomitant]
     Active Substance: SIMVASTATIN
  21. ADVIL [Concomitant]
     Active Substance: IBUPROFEN
  22. AMOXICILLIN SODIUM W/CLAVULANATE POTASSIUM [Concomitant]
     Active Substance: AMOXICILLIN\CLAVULANATE POTASSIUM
  23. ALLOPURINOL. [Concomitant]
     Active Substance: ALLOPURINOL
  24. CARVEDILOL. [Concomitant]
     Active Substance: CARVEDILOL
  25. METFORMIN [Concomitant]
     Active Substance: METFORMIN HYDROCHLORIDE

REACTIONS (9)
  - Vomiting [Recovering/Resolving]
  - Headache [Recovering/Resolving]
  - Fatigue [Recovering/Resolving]
  - Dehydration [Recovering/Resolving]
  - Nausea [Recovering/Resolving]
  - Diarrhoea [Recovering/Resolving]
  - Asthenia [Recovering/Resolving]
  - Pyrexia [Recovering/Resolving]
  - Hypertension [Recovered/Resolved]

NARRATIVE: CASE EVENT DATE: 201701
